APPROVED DRUG PRODUCT: DOXYCYCLINE HYCLATE
Active Ingredient: DOXYCYCLINE HYCLATE
Strength: EQ 100MG BASE
Dosage Form/Route: CAPSULE;ORAL
Application: A211012 | Product #002
Applicant: AJANTA PHARMA LTD
Approved: Sep 24, 2018 | RLD: No | RS: No | Type: DISCN